FAERS Safety Report 15710744 (Version 2)
Quarter: 2018Q4

REPORT INFORMATION
  Report Type: Spontaneous
  Country: BE (occurrence: BE)
  Receive Date: 20181211
  Receipt Date: 20181214
  Transmission Date: 20190205
  Serious: Yes (Death, Other)
  Sender: FDA-Public Use
  Company Number: BE-SA-2018SA335320

PATIENT
  Age: 4 Day
  Sex: Female

DRUGS (2)
  1. AUBAGIO [Suspect]
     Active Substance: TERIFLUNOMIDE
     Dosage: 10 MG, QD
     Route: 048
     Dates: start: 201510
  2. OLANZAPINE. [Suspect]
     Active Substance: OLANZAPINE
     Dosage: 10 MG, QD
     Route: 050

REACTIONS (2)
  - Alveolar capillary dysplasia [Fatal]
  - Paternal exposure timing unspecified [Fatal]
